FAERS Safety Report 6254506-3 (Version None)
Quarter: 2009Q3

REPORT INFORMATION
  Report Type: 
  Country: None (occurrence: None)
  Receive Date: 20090701
  Receipt Date: 20090701
  Transmission Date: 20100115
  Serious: No
  Sender: FDA-Public Use
  Company Number: None

PATIENT
  Age: 25 Year
  Sex: Female
  Weight: 61.2356 kg

DRUGS (2)
  1. SINGULAIR [Suspect]
     Indication: ASTHMA
     Dosage: 10 MG 1X DAILY PO
     Route: 048
     Dates: start: 19960601, end: 20090630
  2. SINGULAIR [Suspect]
     Indication: HYPERSENSITIVITY
     Dosage: 10 MG 1X DAILY PO
     Route: 048
     Dates: start: 19960601, end: 20090630

REACTIONS (8)
  - ANXIETY [None]
  - ECZEMA [None]
  - INSOMNIA [None]
  - IRRITABILITY [None]
  - MIGRAINE [None]
  - RASH [None]
  - URTICARIA [None]
  - VERTIGO [None]
